FAERS Safety Report 6412200-X (Version None)
Quarter: 2009Q4

REPORT INFORMATION
  Report Type: 
  Country: None (occurrence: None)
  Receive Date: 20091023
  Receipt Date: 20091014
  Transmission Date: 20100525
  Serious: Yes (Hospitalization)
  Sender: FDA-Public Use
  Company Number: B0531835A

PATIENT
  Sex: Male

DRUGS (9)
  1. INFANRIX [Suspect]
     Indication: PROPHYLAXIS
     Route: 030
     Dates: start: 20080625, end: 20080625
  2. MENINGITEC [Suspect]
     Indication: PROPHYLAXIS
     Route: 030
     Dates: start: 20080625, end: 20080625
  3. ACYCLOVIR [Suspect]
     Route: 065
  4. INFANRIX-IPV/HIB [Concomitant]
     Route: 065
     Dates: start: 20080416, end: 20080416
  5. INFANRIX-IPV/HIB [Concomitant]
     Route: 065
     Dates: start: 20080319, end: 20080319
  6. PREVENAR [Concomitant]
     Indication: PROPHYLAXIS
     Route: 065
     Dates: start: 20071217, end: 20071217
  7. INFANRIX-IPV/HIB [Concomitant]
     Route: 065
     Dates: start: 20070216, end: 20070216
  8. VARILRIX [Concomitant]
     Indication: PROPHYLAXIS
     Route: 065
  9. BCG [Concomitant]
     Indication: PROPHYLAXIS
     Route: 065
     Dates: start: 20061218, end: 20061218

REACTIONS (6)
  - BODY TEMPERATURE INCREASED [None]
  - HEPATIC ENZYME INCREASED [None]
  - JAUNDICE [None]
  - PNEUMONIA [None]
  - PYREXIA [None]
  - VACCINATION COMPLICATION [None]
